FAERS Safety Report 5346207-0 (Version None)
Quarter: 2007Q2

REPORT INFORMATION
  Report Type: 
  Country: None (occurrence: None)
  Receive Date: 20070605
  Receipt Date: 20070525
  Transmission Date: 20071010
  Serious: Yes (Death)
  Sender: FDA-Public Use
  Company Number: CH-SANOFI-SYNTHELABO-A01200705583

PATIENT
  Age: 68 Year
  Sex: Female

DRUGS (3)
  1. FOLINIC ACID [Concomitant]
     Dosage: UNK
  2. FLUOROURACIL [Concomitant]
     Dosage: UNK
  3. ELOXATIN [Suspect]
     Dosage: UNK

REACTIONS (2)
  - LUNG INFILTRATION [None]
  - RESPIRATORY FAILURE [None]
